FAERS Safety Report 6228440-9 (Version None)
Quarter: 2009Q2

REPORT INFORMATION
  Report Type: 
  Country: None (occurrence: None)
  Receive Date: 20090612
  Receipt Date: 20090602
  Transmission Date: 20091009
  Serious: Yes (Death)
  Sender: FDA-Public Use
  Company Number: CH-ELI_LILLY_AND_COMPANY-CH200905000886

PATIENT
  Age: 71 Year
  Sex: Female
  Weight: 72 kg

DRUGS (5)
  1. FORTEO [Suspect]
     Indication: OSTEOPOROSIS
     Dosage: 20 UG, DAILY (1/D)
     Route: 058
     Dates: start: 20070612, end: 20080101
  2. CALCIMAGON-D3 [Concomitant]
     Indication: OSTEOPOROSIS
     Dosage: 500 MG, 2/D
     Route: 048
  3. SIMCORA [Concomitant]
     Indication: HYPERLIPIDAEMIA
     Dosage: 1 D/F, DAILY (1/D)
     Route: 048
  4. TIATRAL /00002701/ [Concomitant]
     Indication: ATRIAL FIBRILLATION
     Dosage: 100 MG, DAILY (1/D)
     Route: 048
  5. LISITRIL [Concomitant]
     Indication: ESSENTIAL HYPERTENSION
     Dosage: 10 MG, 2/D
     Route: 048

REACTIONS (1)
  - SARCOMA [None]
